FAERS Safety Report 5384686-3 (Version None)
Quarter: 2007Q3

REPORT INFORMATION
  Report Type: 
  Country: None (occurrence: None)
  Receive Date: 20070710
  Receipt Date: 20070507
  Transmission Date: 20080115
  Serious: Yes (Hospitalization)
  Sender: FDA-Public Use
  Company Number: 2007-01310

PATIENT
  Age: 36 Year
  Sex: Female
  Weight: 56.7 kg

DRUGS (2)
  1. VELCADE [Suspect]
     Indication: MULTIPLE MYELOMA
     Dosage: 1.30 MG/M2, INTRAVENOUS; 1.00 MG/M2, INTRAVENOUS
     Route: 042
     Dates: start: 20070501
  2. VELCADE [Suspect]
     Indication: MULTIPLE MYELOMA
     Dosage: 1.30 MG/M2, INTRAVENOUS; 1.00 MG/M2, INTRAVENOUS
     Route: 042
     Dates: start: 20070503

REACTIONS (3)
  - ABDOMINAL PAIN [None]
  - ASCITES [None]
  - ILEUS [None]
